FAERS Safety Report 9325014 (Version 4)
Quarter: 2014Q4

REPORT INFORMATION
  Report Type: Spontaneous
  Country: GB (occurrence: None)
  Receive Date: 20130530
  Receipt Date: 20141023
  Transmission Date: 20150529
  Serious: Yes (Hospitalization)
  Sender: FDA-Public Use
  Company Number: 1498778

PATIENT
  Age: 66 Year
  Sex: Male

DRUGS (11)
  1. SUNITINIB MALATE [Concomitant]
     Active Substance: SUNITINIB MALATE
     Indication: TRANSITIONAL CELL CARCINOMA
     Dates: start: 20120927, end: 20120929
  2. MORPHINE SULPHATE [Suspect]
     Active Substance: MORPHINE SULFATE
     Indication: PRODUCT USED FOR UNKNOWN INDICATION
     Route: 048
     Dates: start: 20120918
  3. BISACODYL. [Concomitant]
     Active Substance: BISACODYL
  4. TAMSULOSIN [Concomitant]
     Active Substance: TAMSULOSIN
  5. MACROGOL 3350 [Concomitant]
  6. PREDNISOLONE. [Concomitant]
     Active Substance: PREDNISOLONE
  7. PARACETAMOL [Concomitant]
     Active Substance: ACETAMINOPHEN
  8. METOCLOPRAMIDE. [Concomitant]
     Active Substance: METOCLOPRAMIDE
  9. GEMCITABINE HYDROCHLORIDE. [Suspect]
     Active Substance: GEMCITABINE HYDROCHLORIDE
     Indication: TRANSITIONAL CELL CARCINOMA
     Dates: start: 20120926, end: 20121128
  10. HYDROCORTISONE SODIUM SUCCINATE [Concomitant]
     Active Substance: HYDROCORTISONE SODIUM SUCCINATE
  11. CISPLATIN. [Suspect]
     Active Substance: CISPLATIN
     Indication: PRODUCT USED FOR UNKNOWN INDICATION
     Dosage: (NOT OTHERWISE SPECIFIED)
     Route: 042
     Dates: start: 20120926, end: 20121121

REACTIONS (4)
  - Drug ineffective [None]
  - Deep vein thrombosis [None]
  - Nausea [None]
  - Vomiting [None]

NARRATIVE: CASE EVENT DATE: 20121011
